FAERS Safety Report 5604773-1 (Version None)
Quarter: 2008Q1

REPORT INFORMATION
  Report Type: 
  Country: None (occurrence: None)
  Receive Date: 20080128
  Receipt Date: 20080116
  Transmission Date: 20080703
  Serious: Yes (Death)
  Sender: FDA-Public Use
  Company Number: ES-ROCHE-542954

PATIENT

DRUGS (2)
  1. CAPECITABINE [Suspect]
     Dosage: ON DAYS 1-14 EVERY 3 WEEKS
     Route: 048
  2. OXALIPLATIN [Suspect]
     Dosage: AS 120-MIN INTRAVENOUS INFUSION ON DAY 1
     Route: 042

REACTIONS (2)
  - DIARRHOEA [None]
  - SEPSIS [None]
